FAERS Safety Report 18454306 (Version 1)
Quarter: 2020Q4

REPORT INFORMATION
  Report Type: Report from Study
  Country: AU (occurrence: AU)
  Receive Date: 20201102
  Receipt Date: 20201102
  Transmission Date: 20210114
  Serious: Yes (Other)
  Sender: FDA-Public Use
  Company Number: AU-JNJFOC-20201006985

PATIENT
  Sex: Female

DRUGS (7)
  1. INVEGA SUSTENNA [Suspect]
     Active Substance: PALIPERIDONE PALMITATE
     Indication: SCHIZOPHRENIA
     Route: 030
  2. INVEGA TRINZA [Suspect]
     Active Substance: PALIPERIDONE PALMITATE
  3. INVEGA TRINZA [Suspect]
     Active Substance: PALIPERIDONE PALMITATE
     Indication: SCHIZOPHRENIA
     Route: 030
  4. INVEGA SUSTENNA [Suspect]
     Active Substance: PALIPERIDONE PALMITATE
  5. ABILIFY [Suspect]
     Active Substance: ARIPIPRAZOLE
     Indication: SCHIZOPHRENIA
     Route: 065
  6. INVEGA TRINZA [Suspect]
     Active Substance: PALIPERIDONE PALMITATE
  7. INVEGA SUSTENNA [Suspect]
     Active Substance: PALIPERIDONE PALMITATE

REACTIONS (3)
  - Suicidal ideation [Unknown]
  - Pain [Unknown]
  - Somatic symptom disorder [Unknown]
